FAERS Safety Report 7892619-0 (Version None)
Quarter: 2011Q4

REPORT INFORMATION
  Report Type: 
  Country: None (occurrence: None)
  Receive Date: 20111102
  Receipt Date: 20111017
  Transmission Date: 20120403
  Serious: Yes (Hospitalization, Other)
  Sender: FDA-Public Use
  Company Number: 1000024979

PATIENT
  Age: 26 Year
  Sex: Female

DRUGS (5)
  1. SERTRALINE HYDROCHLORIDE [Suspect]
  2. CITALOPRAM HYDROBROMIDE [Suspect]
  3. PAROXETINE HCL [Suspect]
     Indication: STRESS
     Dosage: 20 MG (20 MG, 1 IN 1 D)
  4. FLUOXETINE HYDROCHLORIDE [Suspect]
  5. VENLAFAXINE [Suspect]
     Dosage: 37.5 MG (37,.5 MG, 1 IN 1 D)

REACTIONS (12)
  - SUICIDAL IDEATION [None]
  - RESTLESSNESS [None]
  - ANGER [None]
  - STRESS [None]
  - IMPULSIVE BEHAVIOUR [None]
  - ECONOMIC PROBLEM [None]
  - ADJUSTMENT DISORDER [None]
  - MENTAL IMPAIRMENT [None]
  - AGGRESSION [None]
  - AKINESIA [None]
  - PANIC ATTACK [None]
  - SUICIDE ATTEMPT [None]
